FAERS Safety Report 18910654 (Version 14)
Quarter: 2025Q2

REPORT INFORMATION
  Report Type: Report from Study
  Country: US (occurrence: US)
  Receive Date: 20210218
  Receipt Date: 20250417
  Transmission Date: 20250717
  Serious: No
  Sender: TAKEDA
  Company Number: US-TAKEDA-US201944104

PATIENT
  Sex: Female

DRUGS (3)
  1. HUMAN IMMUNOGLOBULIN G [Suspect]
     Active Substance: HUMAN IMMUNOGLOBULIN G
     Indication: Primary immunodeficiency syndrome
  2. HUMAN IMMUNOGLOBULIN G [Suspect]
     Active Substance: HUMAN IMMUNOGLOBULIN G
     Indication: IgG deficiency
  3. HUMAN IMMUNOGLOBULIN G [Suspect]
     Active Substance: HUMAN IMMUNOGLOBULIN G
     Indication: Immunodeficiency common variable

REACTIONS (23)
  - Fatigue [Unknown]
  - Balance disorder [Unknown]
  - Oropharyngeal pain [Unknown]
  - Depression [Unknown]
  - Sinus disorder [Unknown]
  - Peripheral swelling [Unknown]
  - Fall [Unknown]
  - Atrial tachycardia [Unknown]
  - Sleep apnoea syndrome [Unknown]
  - Stress [Unknown]
  - Poor quality sleep [Unknown]
  - Multiple allergies [Unknown]
  - Limb discomfort [Unknown]
  - Device occlusion [Unknown]
  - Insomnia [Unknown]
  - Anaemia [Unknown]
  - Malaise [Unknown]
  - Blood pressure increased [Unknown]
  - Pain in extremity [Unknown]
  - Hypersensitivity [Unknown]
  - Headache [Unknown]
  - Pyrexia [Unknown]
  - Back pain [Unknown]
